FAERS Safety Report 7903797-9 (Version None)
Quarter: 2011Q4

REPORT INFORMATION
  Report Type: 
  Country: None (occurrence: None)
  Receive Date: 20111109
  Receipt Date: 20111107
  Transmission Date: 20120403
  Serious: Yes (Death)
  Sender: FDA-Public Use
  Company Number: MX-SANOFI-AVENTIS-2011SA073018

PATIENT
  Age: 91 Year
  Sex: Male

DRUGS (3)
  1. ASPIRIN [Concomitant]
     Indication: THROMBOSIS PROPHYLAXIS
     Route: 048
     Dates: start: 20040101, end: 20110809
  2. PLAVIX [Suspect]
     Indication: THROMBOSIS PROPHYLAXIS
     Route: 048
     Dates: start: 20040101, end: 20110809
  3. BI-EUGLUCON [Concomitant]
     Indication: TYPE 2 DIABETES MELLITUS
     Dosage: DOSE:1 UNIT(S)
     Route: 048
     Dates: start: 19990101, end: 20110809

REACTIONS (7)
  - RESPIRATORY FAILURE [None]
  - PLEURITIC PAIN [None]
  - PYREXIA [None]
  - TACHYPNOEA [None]
  - HYPERHIDROSIS [None]
  - PNEUMONIA BACTERIAL [None]
  - TACHYCARDIA [None]
